FAERS Safety Report 6590573-5 (Version None)
Quarter: 2010Q1

REPORT INFORMATION
  Report Type: 
  Country: None (occurrence: None)
  Receive Date: 20100219
  Receipt Date: 20100208
  Transmission Date: 20100710
  Serious: Yes (Other)
  Sender: FDA-Public Use
  Company Number: DE-WYE-G05523310

PATIENT
  Sex: Male
  Weight: 76 kg

DRUGS (3)
  1. CLIMOPAX [Suspect]
     Dosage: OVERDOSE AMOUNT 28 TABLETS
     Route: 048
     Dates: start: 20100207, end: 20100207
  2. GELOMYRTOL FORTE [Suspect]
     Dosage: OVERDOSE AMOUNT 19 CAPSULES
     Route: 048
     Dates: start: 20100207, end: 20100207
  3. ASPIRIN [Suspect]
     Dosage: 10 TABLETS (OVERDOSE AMOUNT UNKNOWN)
     Route: 048
     Dates: start: 20100207, end: 20100207

REACTIONS (2)
  - INTENTIONAL OVERDOSE [None]
  - SUICIDE ATTEMPT [None]
